FAERS Safety Report 16429432 (Version 1)
Quarter: 2019Q2

REPORT INFORMATION
  Report Type: Other
  Country: IT (occurrence: IT)
  Receive Date: 20190614
  Receipt Date: 20190614
  Transmission Date: 20190711
  Serious: Yes (Other)
  Sender: FDA-Public Use
  Company Number: IT-MACLEODS PHARMACEUTICALS US LTD-MAC2019021671

PATIENT

DRUGS (3)
  1. CORTISONE [Suspect]
     Active Substance: CORTISONE\HYDROCORTISONE
     Indication: SUICIDE ATTEMPT
     Dosage: TABLET, ABUSE / MISUSE
     Route: 048
     Dates: start: 20190529, end: 20190529
  2. DILTIAZEM DOC GENERICI 60 MG TABLETS [Suspect]
     Active Substance: DILTIAZEM HYDROCHLORIDE
     Indication: SUICIDE ATTEMPT
     Dosage: 12 DOSAGE FORM, TABLET ABUSE / MISUSE TABLET
     Route: 048
     Dates: start: 20190529, end: 20190529
  3. PANTOPRAZOLE TABLET [Suspect]
     Active Substance: PANTOPRAZOLE
     Indication: SUICIDE ATTEMPT
     Dosage: UNK, TABLET ABUSE / MISUSE
     Route: 048
     Dates: start: 20190529, end: 20190529

REACTIONS (3)
  - Apraxia [Recovering/Resolving]
  - Suicide attempt [Recovering/Resolving]
  - Intentional overdose [Recovering/Resolving]

NARRATIVE: CASE EVENT DATE: 20190529
